FAERS Safety Report 8987454 (Version 2)
Quarter: 2013Q1

REPORT INFORMATION
  Report Type: Spontaneous
  Country: US (occurrence: US)
  Receive Date: 20121227
  Receipt Date: 20130107
  Transmission Date: 20140127
  Serious: No
  Sender: FDA-Public Use
  Company Number: US-PFIZER INC-2012327088

PATIENT
  Age: 81 Year
  Sex: Male

DRUGS (2)
  1. INLYTA [Suspect]
     Dosage: 7 MG, 2X/DAY (2 MG (2 TABS) WITH 5 MG (1TAB) TO MAKE 7 MG BID)
     Dates: start: 20120807
  2. INLYTA [Suspect]
     Dosage: 5 MG, 2X/DAY

REACTIONS (1)
  - Hypertension [Unknown]
